FAERS Safety Report 23335920 (Version 1)
Quarter: 2023Q4

REPORT INFORMATION
  Report Type: Spontaneous
  Country: FR (occurrence: FR)
  Receive Date: 20231225
  Receipt Date: 20231225
  Transmission Date: 20240109
  Serious: Yes (Other)
  Sender: FDA-Public Use
  Company Number: FR-ORGANON-O2311FRA003225

PATIENT
  Age: 38 Year
  Sex: Female
  Weight: 57 kg

DRUGS (1)
  1. NEXPLANON [Suspect]
     Active Substance: ETONOGESTREL
     Indication: Contraception
     Dosage: 1 DOSAGE FORM
     Route: 058
     Dates: start: 20230901

REACTIONS (8)
  - Soft tissue inflammation [Recovered/Resolved]
  - Implant site pain [Recovered/Resolved]
  - Implant site oedema [Recovered/Resolved]
  - Implant site erythema [Recovered/Resolved]
  - Implant site induration [Recovered/Resolved]
  - Amenorrhoea [Unknown]
  - Implant site inflammation [Recovered/Resolved]
  - Implant site swelling [Recovered/Resolved]

NARRATIVE: CASE EVENT DATE: 20230901
